FAERS Safety Report 10052547 (Version 3)
Quarter: 2014Q2

REPORT INFORMATION
  Report Type: Spontaneous
  Country: US (occurrence: US)
  Receive Date: 20140402
  Receipt Date: 20140612
  Transmission Date: 20141212
  Serious: No
  Sender: FDA-Public Use
  Company Number: US-BAYER-2014-049867

PATIENT
  Age: 47 Year
  Sex: Female

DRUGS (1)
  1. MIRENA [Suspect]
     Indication: MENSTRUATION IRREGULAR
     Dosage: 20 ?G/D, CONT
     Route: 015
     Dates: start: 20130321, end: 20140310

REACTIONS (4)
  - Off label use [None]
  - Hypomenorrhoea [None]
  - Polymenorrhoea [None]
  - Menorrhagia [None]
